FAERS Safety Report 4331727-8 (Version None)
Quarter: 2004Q2

REPORT INFORMATION
  Report Type: 
  Country: None (occurrence: None)
  Receive Date: 20040405
  Receipt Date: 20030425
  Transmission Date: 20050107
  Serious: No
  Sender: FDA-Public Use
  Company Number: US-GLAXOSMITHKLINE-A0406362A

PATIENT
  Age: 50 Year
  Sex: Male

DRUGS (4)
  1. FLOVENT [Suspect]
     Indication: ILL-DEFINED DISORDER
     Route: 055
  2. ADVAIR DISKUS 100/50 [Suspect]
     Indication: ILL-DEFINED DISORDER
     Route: 055
  3. SEREVENT [Suspect]
     Indication: ILL-DEFINED DISORDER
     Route: 055
  4. COMBIVENT [Concomitant]

REACTIONS (1)
  - DRUG INEFFECTIVE [None]
